FAERS Safety Report 6774561-1 (Version None)
Quarter: 2010Q2

REPORT INFORMATION
  Report Type: 
  Country: None (occurrence: None)
  Receive Date: 20100617
  Receipt Date: 20100608
  Transmission Date: 20101027
  Serious: Yes (Hospitalization)
  Sender: FDA-Public Use
  Company Number: NL-MPIJNJ-2010-03024

PATIENT

DRUGS (2)
  1. VELCADE [Suspect]
     Indication: MULTIPLE MYELOMA
     Dosage: 2.1 MG, CYCLIC
     Route: 042
     Dates: start: 20100604
  2. DEXAMETHASONE                      /00016002/ [Concomitant]
     Indication: DRUG USE FOR UNKNOWN INDICATION

REACTIONS (8)
  - BACK PAIN [None]
  - DECREASED APPETITE [None]
  - DIARRHOEA [None]
  - DRY MOUTH [None]
  - FATIGUE [None]
  - PARAESTHESIA [None]
  - POOR QUALITY SLEEP [None]
  - WEIGHT DECREASED [None]
